FAERS Safety Report 7043757-6 (Version None)
Quarter: 2010Q4

REPORT INFORMATION
  Report Type: 
  Country: None (occurrence: None)
  Receive Date: 20101008
  Receipt Date: 20100927
  Transmission Date: 20110411
  Serious: Yes (Death, Other)
  Sender: FDA-Public Use
  Company Number: 2010P1001730

PATIENT
  Age: 72 Year
  Sex: Female

DRUGS (2)
  1. MINOCYCLINE HCL [Suspect]
     Indication: BRONCHITIS
  2. CON MEDS [Concomitant]

REACTIONS (3)
  - PIGMENTATION DISORDER [None]
  - PNEUMONIA [None]
  - THYROID DISORDER [None]
